FAERS Safety Report 11152249 (Version 1)
Quarter: 2015Q2

REPORT INFORMATION
  Report Type: Spontaneous
  Country: US (occurrence: None)
  Receive Date: 20150529
  Receipt Date: 20150529
  Transmission Date: 20150821
  Serious: Yes (Other)
  Sender: FDA-Public Use
  Company Number: None

PATIENT
  Age: 56 Year
  Sex: Male
  Weight: 90.72 kg

DRUGS (13)
  1. INVOKANA [Concomitant]
     Active Substance: CANAGLIFLOZIN
  2. ASACOL HD [Concomitant]
     Active Substance: MESALAMINE
  3. NORVASC [Concomitant]
     Active Substance: AMLODIPINE BESYLATE
  4. NORCO [Concomitant]
     Active Substance: ACETAMINOPHEN\HYDROCODONE BITARTRATE
  5. LANTUS [Concomitant]
     Active Substance: INSULIN GLARGINE
  6. LYRICA [Concomitant]
     Active Substance: PREGABALIN
  7. LOVASTATIN. [Concomitant]
     Active Substance: LOVASTATIN
  8. PLAVIX [Concomitant]
     Active Substance: CLOPIDOGREL BISULFATE
  9. ENTYVIO [Suspect]
     Active Substance: VEDOLIZUMAB
     Indication: COLITIS ULCERATIVE
     Dosage: 0, 2, 6 WEEKS
     Route: 042
  10. NEXIUM [Concomitant]
     Active Substance: ESOMEPRAZOLE MAGNESIUM
  11. VASOTEC [Concomitant]
     Active Substance: ENALAPRIL MALEATE
  12. GLUCOPHAGE [Concomitant]
     Active Substance: METFORMIN HYDROCHLORIDE
  13. LOPRESSOR [Concomitant]
     Active Substance: METOPROLOL TARTRATE

REACTIONS (3)
  - Hepatic enzyme increased [None]
  - Abdominal pain [None]
  - Chromaturia [None]

NARRATIVE: CASE EVENT DATE: 20150528
